FAERS Safety Report 5670638-2 (Version None)
Quarter: 2008Q1

REPORT INFORMATION
  Report Type: 
  Country: None (occurrence: None)
  Receive Date: 20080313
  Receipt Date: 20080306
  Transmission Date: 20080703
  Serious: Yes (Other)
  Sender: FDA-Public Use
  Company Number: 18628

PATIENT
  Sex: Female

DRUGS (10)
  1. PENTOSTATIN [Suspect]
     Indication: CHRONIC GRAFT VERSUS HOST DISEASE
  2. BUSULFAN [Concomitant]
  3. FLUDARABINE [Concomitant]
  4. METHOTREXATE [Concomitant]
  5. TACROLIMUS [Concomitant]
  6. PREDNISONE TAB [Concomitant]
  7. MYCOPHENOLATE MOFETIL [Concomitant]
  8. VALACYCLOVIR [Concomitant]
  9. DAPSONE [Concomitant]
  10. VORICONAZOLE [Concomitant]

REACTIONS (3)
  - BRONCHOPULMONARY ASPERGILLOSIS [None]
  - IMMUNOSUPPRESSION [None]
  - NOCARDIOSIS [None]
